FAERS Safety Report 6087227-0 (Version None)
Quarter: 2009Q1

REPORT INFORMATION
  Report Type: 
  Country: None (occurrence: None)
  Receive Date: 20090223
  Receipt Date: 20090210
  Transmission Date: 20090719
  Serious: Yes (Death)
  Sender: FDA-Public Use
  Company Number: US-JNJCH-2009004799

PATIENT
  Age: 53 Year
  Sex: Female

DRUGS (6)
  1. CETIRIZINE HYDROCHLORIDE [Suspect]
     Indication: DRUG USE FOR UNKNOWN INDICATION
     Dosage: DAILY DOSE:10MG
     Route: 065
  2. OXYBATE SODIUM [Suspect]
     Indication: DRUG USE FOR UNKNOWN INDICATION
     Dosage: DAILY DOSE:7.5GRAM
     Route: 048
  3. TRAMADOL HCL [Suspect]
     Indication: DRUG USE FOR UNKNOWN INDICATION
     Dosage: DAILY DOSE:1950MG
     Route: 065
  4. CARISOPRODOL [Suspect]
     Indication: DRUG USE FOR UNKNOWN INDICATION
     Dosage: DAILY DOSE:350MG
     Route: 065
  5. GABAPENTIN [Concomitant]
     Dosage: DAILY DOSE:1800MG
  6. MODAFINIL [Concomitant]
     Dosage: DAILY DOSE:40MG

REACTIONS (2)
  - ACCIDENTAL OVERDOSE [None]
  - SNORING [None]
